FAERS Safety Report 21771097 (Version 1)
Quarter: 2022Q4

REPORT INFORMATION
  Report Type: Spontaneous
  Country: US (occurrence: None)
  Receive Date: 20221222
  Receipt Date: 20221222
  Transmission Date: 20230113
  Serious: No
  Sender: FDA-Public Use
  Company Number: None

PATIENT
  Sex: Female
  Weight: 75.75 kg

DRUGS (6)
  1. KISQALI FEMARA CO-PACK [Suspect]
     Active Substance: LETROZOLE\RIBOCICLIB
     Indication: Breast cancer female
     Dosage: 400MG DAILY ORAL  - 21 DAYS  ON , 7D OFF?
     Route: 050
     Dates: start: 202211
  2. FUROSEMIDE [Concomitant]
  3. LETROZOLE [Concomitant]
     Active Substance: LETROZOLE
  4. VITAMINS [Concomitant]
     Active Substance: VITAMINS
  5. VALACYCLOVIR [Concomitant]
     Active Substance: VALACYCLOVIR HYDROCHLORIDE
  6. ZYRTEC [Concomitant]
     Active Substance: CETIRIZINE HYDROCHLORIDE

REACTIONS (1)
  - COVID-19 [None]
